FAERS Safety Report 13120949 (Version 1)
Quarter: 2017Q1

REPORT INFORMATION
  Report Type: Spontaneous
  Country: US (occurrence: US)
  Receive Date: 20170113
  Receipt Date: 20170113
  Transmission Date: 20170428
  Serious: No
  Sender: FDA-Public Use
  Company Number: None

PATIENT
  Age: 50 Year
  Sex: Female
  Weight: 112.5 kg

DRUGS (24)
  1. XANAX [Concomitant]
     Active Substance: ALPRAZOLAM
  2. FISH OIL-OMEGA-3 (FISH OIL) [Concomitant]
  3. IBRANCE [Concomitant]
     Active Substance: PALBOCICLIB
  4. CRANBERRY DENOSUMAB (XGEVA) [Concomitant]
  5. ASPIRIN. [Concomitant]
     Active Substance: ASPIRIN
  6. CALCIUM CARBONATE-VITAMIN D (CALTRATE) [Concomitant]
  7. IBUPROFEN. [Concomitant]
     Active Substance: IBUPROFEN
  8. IBRANCE [Suspect]
     Active Substance: PALBOCICLIB
     Indication: BREAST CANCER METASTATIC
     Dosage: ?          QUANTITY:21 CAPSULE(S);?
     Route: 048
     Dates: start: 20160908
  9. GLUCOSAMINE-CHONDROITIN [Concomitant]
     Active Substance: CHONDROITIN SULFATE (BOVINE)\GLUCOSAMINE SULFATE
  10. LORAZEPAM (ATIVAN) [Concomitant]
  11. MELATONIN [Concomitant]
     Active Substance: MELATONIN
  12. ZOFRAN ODT [Concomitant]
     Active Substance: ONDANSETRON HYDROCHLORIDE
  13. ZYRTEC [Concomitant]
     Active Substance: CETIRIZINE HYDROCHLORIDE
  14. FASLODEX [Concomitant]
     Active Substance: FULVESTRANT
  15. FLUCONAZOLE. [Concomitant]
     Active Substance: FLUCONAZOLE
  16. POLYETHYLENE GLYCOL (DULCOLAX BALANCE) [Concomitant]
  17. CITALOPRAM HYDROBROMIDE (CELEXA) [Concomitant]
  18. HYDROCODONE-ACETAMINOPHEN (NORCO) [Concomitant]
  19. PALBOCICLIB (PALBOCICLIB) [Concomitant]
  20. VITAMIN E COMPLEX [Concomitant]
  21. ESTRADIOL (VAGIFEM) [Concomitant]
  22. FLUTICASONE (VERAMYST) [Concomitant]
  23. METHYLPHENIDATE (RITALIN) [Concomitant]
  24. TRAMADOL HCL [Concomitant]
     Active Substance: TRAMADOL HYDROCHLORIDE

REACTIONS (2)
  - Abdominal pain upper [None]
  - Splenomegaly [None]

NARRATIVE: CASE EVENT DATE: 20170110
